FAERS Safety Report 23351326 (Version 1)
Quarter: 2023Q4

REPORT INFORMATION
  Report Type: Spontaneous
  Country: PT (occurrence: PT)
  Receive Date: 20231229
  Receipt Date: 20231229
  Transmission Date: 20240110
  Serious: Yes (Other)
  Sender: FDA-Public Use
  Company Number: None

PATIENT
  Age: 6 Year
  Sex: Female

DRUGS (1)
  1. METHYLPHENIDATE HYDROCHLORIDE [Suspect]
     Active Substance: METHYLPHENIDATE HYDROCHLORIDE
     Indication: Ill-defined disorder
     Dosage: 18.000MG
     Route: 048

REACTIONS (3)
  - Dystonia [Recovered/Resolved]
  - Agitation [Recovered/Resolved]
  - Choreoathetosis [Recovered/Resolved]
